FAERS Safety Report 4521937-9 (Version None)
Quarter: 2004Q4

REPORT INFORMATION
  Report Type: 
  Country: None (occurrence: None)
  Receive Date: 20041209
  Receipt Date: 20040907
  Transmission Date: 20050328
  Serious: Yes (Hospitalization)
  Sender: FDA-Public Use
  Company Number: IT-BRISTOL-MYERS SQUIBB COMPANY-12693727

PATIENT
  Age: 40 Year
  Sex: Male

DRUGS (3)
  1. ARIPIPRAZOLE [Suspect]
     Indication: SCHIZOPHRENIA
     Dosage: 15MG 07-MAR-04 TO 11-JUL-04, 30MG 12-JUL-04 TO 26-JUL-04 (INTERRUPTED).
     Route: 048
     Dates: start: 20040307, end: 20040726
  2. DEPAKENE [Concomitant]
     Indication: AGGRESSION
     Dates: start: 20040723
  3. RIVOTRIL [Concomitant]
     Indication: ANXIETY
     Dates: start: 20040723

REACTIONS (5)
  - ANXIETY [None]
  - DELUSION [None]
  - DRUG INEFFECTIVE [None]
  - HALLUCINATION, AUDITORY [None]
  - SCHIZOPHRENIA [None]
